FAERS Safety Report 16855085 (Version 1)
Quarter: 2019Q3

REPORT INFORMATION
  Report Type: Report from Study
  Country: SE (occurrence: SE)
  Receive Date: 20190926
  Receipt Date: 20190926
  Transmission Date: 20191005
  Serious: Yes (Hospitalization, Other)
  Sender: FDA-Public Use
  Company Number: SE-GLAXOSMITHKLINE-SE2019GSK171720

PATIENT
  Age: 65 Year
  Sex: Male
  Weight: 76 kg

DRUGS (3)
  1. ACYCLOVIR. [Suspect]
     Active Substance: ACYCLOVIR
     Indication: HERPES SIMPLEX ENCEPHALITIS
     Dosage: 15 MG/KG, TID
     Route: 042
  2. ACYCLOVIR. [Suspect]
     Active Substance: ACYCLOVIR
     Dosage: 15 MG/KG, BID
     Route: 042
  3. FOSCARNET [Suspect]
     Active Substance: FOSCARNET
     Indication: HERPES SIMPLEX ENCEPHALITIS
     Dosage: UNK

REACTIONS (10)
  - Monoparesis [Recovered/Resolved]
  - Pyrexia [Recovered/Resolved]
  - Disease recurrence [Recovered/Resolved]
  - Drug level increased [Recovered/Resolved]
  - Neuropsychiatric symptoms [Recovered/Resolved]
  - Cerebral haemorrhage [Recovered/Resolved]
  - Creatinine renal clearance decreased [Recovered/Resolved]
  - Asthenia [Recovered/Resolved]
  - Confusional state [Recovered/Resolved]
  - Disorientation [Recovered/Resolved]
